FAERS Safety Report 8174101-9 (Version None)
Quarter: 2012Q1

REPORT INFORMATION
  Report Type: 
  Country: None (occurrence: None)
  Receive Date: 20120224
  Receipt Date: 20120213
  Transmission Date: 20120608
  Serious: Yes (Other)
  Sender: FDA-Public Use
  Company Number: 2012MA002242

PATIENT
  Age: 39 Year
  Sex: Male

DRUGS (3)
  1. ATARAX [Concomitant]
  2. DIAZEPAM [Suspect]
     Indication: INSOMNIA
     Dosage: 20 MG;QD
  3. SERTRALINE HYDROCHLORIDE [Concomitant]

REACTIONS (8)
  - GYNAECOMASTIA [None]
  - DEPRESSION [None]
  - PALPITATIONS [None]
  - TINNITUS [None]
  - TREMOR [None]
  - NIPPLE DISORDER [None]
  - ANXIETY [None]
  - DRUG INEFFECTIVE [None]
